FAERS Safety Report 9631215 (Version 1)
Quarter: 2013Q4

REPORT INFORMATION
  Report Type: Spontaneous
  Country: BR (occurrence: None)
  Receive Date: 20131016
  Receipt Date: 20131016
  Transmission Date: 20140711
  Serious: Yes (Other)
  Sender: FDA-Public Use
  Company Number: DSU-2013-04778

PATIENT
  Age: 62 Year
  Sex: Male
  Weight: 82 kg

DRUGS (4)
  1. OLMETEC (OLMESARTAN MEDOXOMIL) (20 MILLIGRAM, TABLET) (OLEMSARTAN MEDOXOMIL) [Suspect]
     Indication: PRODUCT USED FOR UNKNOWN INDICATION
     Dosage: 20 MG,
     Dates: start: 2007
  2. NATRILIX [Concomitant]
  3. SINTOCALMY [Concomitant]
  4. SIMVASTATIN [Concomitant]

REACTIONS (3)
  - VIIth nerve paralysis [None]
  - Hypertension [None]
  - Shock [None]
